FAERS Safety Report 4610428-2 (Version None)
Quarter: 2005Q1

REPORT INFORMATION
  Report Type: 
  Country: None (occurrence: None)
  Receive Date: 20050314
  Receipt Date: 20050304
  Transmission Date: 20050727
  Serious: Yes (Hospitalization)
  Sender: FDA-Public Use
  Company Number: 2005US-00473

PATIENT
  Age: 46 Year
  Sex: Male

DRUGS (5)
  1. ACETAMINOPHEN/PSEUDOEPHEDRINE HCI/DEXTROMETHORPHAN HBR(DEXTROMETHORPHA [Suspect]
     Dosage: 240 MG, QD; ORAL
     Route: 048
  2. GUAIFENESIN [Suspect]
  3. MABRON RETARD 150MG (TRAMADOL HYDROCHLORIDE) TABLET MODIFIED RELEASE, [Concomitant]
  4. DIAZEPAM [Concomitant]
  5. CELECOXIB [Concomitant]

REACTIONS (6)
  - ABDOMINAL PAIN [None]
  - COLITIS ISCHAEMIC [None]
  - DIZZINESS [None]
  - HYPERHIDROSIS [None]
  - NAUSEA [None]
  - RECTAL HAEMORRHAGE [None]
